FAERS Safety Report 19778813 (Version 2)
Quarter: 2021Q3

REPORT INFORMATION
  Report Type: Spontaneous
  Country: US (occurrence: US)
  Receive Date: 20210902
  Receipt Date: 20210909
  Transmission Date: 20211014
  Serious: Yes (Other)
  Sender: FDA-Public Use
  Company Number: US-UNITED THERAPEUTICS-UNT-2021-016987

PATIENT
  Age: 23 Year
  Sex: Female

DRUGS (5)
  1. REMODULIN [Suspect]
     Active Substance: TREPROSTINIL
     Indication: PULMONARY ARTERIAL HYPERTENSION
     Dosage: UNK, CONTINUING
     Route: 058
     Dates: start: 202107
  2. REMODULIN [Suspect]
     Active Substance: TREPROSTINIL
     Dosage: UNK, CONTINUING (DECREASED PUMP RATE OF 0.036 ML/HR)
     Route: 058
     Dates: start: 20210826
  3. REMODULIN [Suspect]
     Active Substance: TREPROSTINIL
     Dosage: 0.0623 ?G/KG, CONTINUING
     Route: 058
     Dates: start: 2021
  4. REMODULIN [Suspect]
     Active Substance: TREPROSTINIL
     Dosage: 0.06070 ?G/KG, CONTINUING (PUMP RATE OF 0.058 ML/HR)
     Route: 058
     Dates: start: 2021
  5. REMODULIN [Suspect]
     Active Substance: TREPROSTINIL
     Indication: PULMONARY ARTERIAL HYPERTENSION
     Dosage: UNK UNK, CONTINUING
     Route: 058
     Dates: start: 20210717

REACTIONS (11)
  - Dyspnoea [Unknown]
  - Chest pain [Unknown]
  - Device dislocation [Unknown]
  - Incorrect drug administration rate [Unknown]
  - Infusion site discharge [Unknown]
  - Infusion site pustule [Unknown]
  - Wrong dose [Unknown]
  - Device programming error [Unknown]
  - Infusion site pain [Unknown]
  - Purulent discharge [Unknown]
  - Infusion site haemorrhage [Unknown]

NARRATIVE: CASE EVENT DATE: 2021
